FAERS Safety Report 16930475 (Version 1)
Quarter: 2019Q4

REPORT INFORMATION
  Report Type: Spontaneous
  Country: US (occurrence: US)
  Receive Date: 20191017
  Receipt Date: 20191017
  Transmission Date: 20200122
  Serious: No
  Sender: FDA-Public Use
  Company Number: US-PFIZER INC-2017538692

PATIENT
  Age: 59 Year
  Sex: Female

DRUGS (2)
  1. LYRICA [Suspect]
     Active Substance: PREGABALIN
     Indication: GENERALISED TONIC-CLONIC SEIZURE
  2. LYRICA [Suspect]
     Active Substance: PREGABALIN
     Indication: IDIOPATHIC GENERALISED EPILEPSY
     Dosage: 150 MG, 2X/DAY
     Route: 048

REACTIONS (3)
  - Maculopathy [Unknown]
  - Off label use [Unknown]
  - Product use in unapproved indication [Unknown]
